FAERS Safety Report 4865844-0 (Version None)
Quarter: 2005Q4

REPORT INFORMATION
  Report Type: 
  Country: None (occurrence: None)
  Receive Date: 20051220
  Receipt Date: 20051202
  Transmission Date: 20060501
  Serious: Yes (Other)
  Sender: FDA-Public Use
  Company Number: 390001M05GBR

PATIENT
  Age: 26 Year
  Sex: Female
  Weight: 73 kg

DRUGS (1)
  1. CETROTIDE [Suspect]
     Indication: OOCYTE HARVEST
     Dosage: 0.25 MG, 1 IN 1 DAYS, SUBCUTANEOUS
     Route: 058
     Dates: start: 20050524, end: 20050524

REACTIONS (5)
  - BLOOD PRESSURE DECREASED [None]
  - HYPERSENSITIVITY [None]
  - INFUSION SITE ERYTHEMA [None]
  - INJECTION SITE VESICLES [None]
  - TREMOR [None]
